FAERS Safety Report 19474712 (Version 1)
Quarter: 2021Q2

REPORT INFORMATION
  Report Type: Spontaneous
  Country: CA (occurrence: CA)
  Receive Date: 20210629
  Receipt Date: 20210629
  Transmission Date: 20210717
  Serious: Yes (Hospitalization)
  Sender: FDA-Public Use
  Company Number: CA-JNJFOC-20210649930

PATIENT
  Age: 56 Year
  Sex: Female

DRUGS (10)
  1. RABEPRAZOLE [Concomitant]
     Active Substance: RABEPRAZOLE
  2. TRELEGY ELLIPTA [Concomitant]
     Active Substance: FLUTICASONE FUROATE\UMECLIDINIUM BROMIDE\VILANTEROL TRIFENATATE
     Route: 065
  3. ACETAMINOPHEN AND CODEINE [Concomitant]
     Active Substance: ACETAMINOPHEN\CODEINE PHOSPHATE
  4. PERINDOPRIL [Concomitant]
     Active Substance: PERINDOPRIL
  5. INVOKANA [Suspect]
     Active Substance: CANAGLIFLOZIN
     Indication: TYPE 2 DIABETES MELLITUS
     Route: 048
  6. SIMVASTATIN. [Concomitant]
     Active Substance: SIMVASTATIN
  7. ASA [Concomitant]
     Active Substance: ASPIRIN
     Route: 065
  8. METFORMIN [Concomitant]
     Active Substance: METFORMIN HYDROCHLORIDE
  9. INDAPAMIDE. [Concomitant]
     Active Substance: INDAPAMIDE
  10. TRADJENTA [Concomitant]
     Active Substance: LINAGLIPTIN

REACTIONS (3)
  - Surgery [Recovered/Resolved]
  - Necrotising fasciitis [Recovered/Resolved]
  - Similar reaction on previous exposure to drug [Recovered/Resolved]
